FAERS Safety Report 22281451 (Version 1)
Quarter: 2023Q2

REPORT INFORMATION
  Report Type: Spontaneous
  Country: FR (occurrence: FR)
  Receive Date: 20230504
  Receipt Date: 20230504
  Transmission Date: 20230722
  Serious: Yes (Hospitalization, Other)
  Sender: FDA-Public Use
  Company Number: FR-AFSSAPS-MP2023000769

PATIENT
  Age: 54 Year
  Sex: Female
  Weight: 66 kg

DRUGS (13)
  1. PANTOPRAZOLE [Suspect]
     Active Substance: PANTOPRAZOLE
     Indication: Prophylaxis against gastrointestinal ulcer
     Dosage: UNK
     Route: 048
     Dates: start: 202303, end: 202303
  2. CEFOXITIN SODIUM [Suspect]
     Active Substance: CEFOXITIN SODIUM
     Indication: Infection prophylaxis
     Dosage: 2 GRAM
     Route: 042
     Dates: start: 20230331, end: 20230331
  3. FLAGYL [Suspect]
     Active Substance: METRONIDAZOLE\METRONIDAZOLE HYDROCHLORIDE
     Indication: Antibiotic prophylaxis
     Dosage: UNK
     Route: 042
     Dates: start: 20230331, end: 20230331
  4. KETOPROFEN [Suspect]
     Active Substance: KETOPROFEN
     Indication: Perioperative analgesia
     Dosage: 100 MILLIGRAM
     Route: 042
     Dates: start: 20230331, end: 20230331
  5. TRAMADOL HYDROCHLORIDE [Suspect]
     Active Substance: TRAMADOL HYDROCHLORIDE
     Indication: Analgesic therapy
     Dosage: UNK
     Route: 048
     Dates: start: 202303
  6. CISATRACURIUM [Concomitant]
     Active Substance: CISATRACURIUM
     Indication: Product used for unknown indication
     Dosage: UNK
     Route: 065
  7. DROPERIDOL [Concomitant]
     Active Substance: DROPERIDOL
     Indication: Product used for unknown indication
     Dosage: UNK
     Route: 065
  8. SUFENTANIL [Concomitant]
     Active Substance: SUFENTANIL
     Indication: Product used for unknown indication
     Dosage: UNK
     Route: 065
  9. PROPOFOL [Concomitant]
     Active Substance: PROPOFOL
     Indication: Product used for unknown indication
     Dosage: UNK
     Route: 065
  10. KETAMINE [Concomitant]
     Active Substance: KETAMINE
     Indication: Product used for unknown indication
     Dosage: UNK
     Route: 065
  11. LIDOCAINE [Concomitant]
     Active Substance: LIDOCAINE
     Indication: Product used for unknown indication
     Dosage: UNK
     Route: 065
  12. PERFALGAN [Concomitant]
     Active Substance: ACETAMINOPHEN
     Indication: Product used for unknown indication
     Dosage: UNK
     Route: 065
  13. ACUPAN [Concomitant]
     Active Substance: NEFOPAM HYDROCHLORIDE
     Indication: Product used for unknown indication
     Dosage: UNK
     Route: 065

REACTIONS (2)
  - Leukopenia [Recovering/Resolving]
  - Neutropenia [Recovering/Resolving]

NARRATIVE: CASE EVENT DATE: 20230402
